FAERS Safety Report 14629983 (Version 1)
Quarter: 2018Q1

REPORT INFORMATION
  Report Type: Report from Study
  Country: US (occurrence: US)
  Receive Date: 20180313
  Receipt Date: 20180313
  Transmission Date: 20180509
  Serious: Yes (Life-Threatening, Other)
  Sender: FDA-Public Use
  Company Number: US-AMGEN-USASL2017183210

PATIENT
  Age: 52 Year
  Sex: Female

DRUGS (14)
  1. EZETIMIBE. [Concomitant]
     Active Substance: EZETIMIBE
     Dosage: 5 MG, QD
  2. PREDNISONE. [Concomitant]
     Active Substance: PREDNISONE
     Dosage: 40 MG, QD
  3. REPATHA [Suspect]
     Active Substance: EVOLOCUMAB
     Indication: HYPERCHOLESTEROLAEMIA
     Dosage: 140 MG, Q2WK
     Route: 058
     Dates: start: 20160317
  4. ASA [Concomitant]
     Active Substance: ASPIRIN
     Dosage: 162 MG, QD
  5. LEVOTHYROXINE. [Concomitant]
     Active Substance: LEVOTHYROXINE
     Dosage: 75 MG, QD
  6. ZETIA [Concomitant]
     Active Substance: EZETIMIBE
  7. BOTOX [Concomitant]
     Active Substance: ONABOTULINUMTOXINA
     Dosage: Q90, QD
  8. COLESTIPOL [Concomitant]
     Active Substance: COLESTIPOL
     Dosage: 3 G, BID
  9. HCTZ [Concomitant]
     Active Substance: HYDROCHLOROTHIAZIDE
     Dosage: 12.5 MG, QD
  10. PERCOCET [Concomitant]
     Active Substance: ACETAMINOPHEN\OXYCODONE HYDROCHLORIDE
     Dosage: UNK UNK, AS NECESSARY
  11. VITAMIN D [Concomitant]
     Active Substance: CHOLECALCIFEROL
     Dosage: 10000 UNIT, QD
  12. PLAVIX [Concomitant]
     Active Substance: CLOPIDOGREL BISULFATE
     Dosage: 75 MG, QD
  13. KCL [Concomitant]
     Active Substance: POTASSIUM CHLORIDE
     Dosage: 20 MEQ, BID
  14. FUROSEMIDE. [Concomitant]
     Active Substance: FUROSEMIDE
     Dosage: 20 MG, AS NECESSARY

REACTIONS (9)
  - Drug effect incomplete [Unknown]
  - Heart rate increased [Unknown]
  - Loss of consciousness [Unknown]
  - Hip arthroplasty [Unknown]
  - Intraocular melanoma [Unknown]
  - Visual impairment [Not Recovered/Not Resolved]
  - Blood pressure increased [Unknown]
  - Mechanical ventilation [Unknown]
  - Deafness [Not Recovered/Not Resolved]

NARRATIVE: CASE EVENT DATE: 201712
